FAERS Safety Report 8863377 (Version 2)
Quarter: 2012Q4

REPORT INFORMATION
  Report Type: 
  Country: US (occurrence: US)
  Receive Date: 20121025
  Receipt Date: 20121119
  Transmission Date: 20130627
  Serious: Yes (Life-Threatening, Other)
  Sender: FDA-Public Use
  Company Number: US-BRISTOL-MYERS SQUIBB COMPANY-17042193

PATIENT
  Age: 59 Year
  Sex: Female
  Weight: 112.47 kg

DRUGS (15)
  1. ORENCIA [Suspect]
     Indication: RHEUMATOID ARTHRITIS
     Dosage: Last inf: 7Sep12,6Jun12,22Jun12,6Jul12,22Oct12
     Route: 042
     Dates: start: 201206
  2. METHOTREXATE [Concomitant]
  3. PREDNISONE [Concomitant]
  4. WELLBUTRIN XL [Concomitant]
  5. LEXAPRO [Concomitant]
  6. ABILIFY [Concomitant]
  7. ATIVAN [Concomitant]
  8. MINOCYCLINE [Concomitant]
  9. XYZAL [Concomitant]
  10. MORPHINE SULFATE IR [Concomitant]
  11. CYMBALTA [Concomitant]
  12. VOLTAREN [Concomitant]
  13. FLECTOR [Concomitant]
     Dosage: Flector Patch 1.3%
  14. AVINZA [Concomitant]
  15. VESICARE [Concomitant]

REACTIONS (2)
  - Laryngospasm [Unknown]
  - Uterine disorder [Unknown]
